FAERS Safety Report 7067695-8 (Version None)
Quarter: 2010Q4

REPORT INFORMATION
  Report Type: 
  Country: None (occurrence: None)
  Receive Date: 20101028
  Receipt Date: 20101015
  Transmission Date: 20110411
  Serious: Yes (Other)
  Sender: FDA-Public Use
  Company Number: PHHY2009GB34957

PATIENT
  Sex: Male

DRUGS (4)
  1. CLOZARIL [Suspect]
     Indication: SCHIZOPHRENIA
     Dosage: 400 MG, UNK
     Route: 048
     Dates: start: 20090214
  2. CLOZARIL [Suspect]
     Dosage: 325 MG, UNK
     Route: 048
     Dates: end: 20091026
  3. FLUOXETINE [Concomitant]
     Dosage: 40MG/DAY
  4. PROCYCLIDINE HYDROCHLORIDE 2MG TAB [Concomitant]
     Dosage: 5 MG, BID

REACTIONS (4)
  - ELECTROCARDIOGRAM QT PROLONGED [None]
  - LEFT VENTRICULAR DYSFUNCTION [None]
  - MYOCARDIAL ISCHAEMIA [None]
  - SYNCOPE [None]
